FAERS Safety Report 10009532 (Version 1)
Quarter: 2014Q1

REPORT INFORMATION
  Report Type: Spontaneous
  Country: US (occurrence: US)
  Receive Date: 20140312
  Receipt Date: 20140312
  Transmission Date: 20141002
  Serious: No
  Sender: FDA-Public Use
  Company Number: US-INCYTE CORPORATION-2012IN001985

PATIENT
  Age: 61 Year
  Sex: Male

DRUGS (3)
  1. JAKAFI [Suspect]
     Indication: MYELOFIBROSIS
     Dosage: 1 TABLET, BID
     Route: 048
     Dates: start: 2012, end: 2012
  2. JAKAFI [Suspect]
     Dosage: 1 TABLET, BID
     Route: 048
     Dates: start: 2012, end: 20121001
  3. PERCOCET [Concomitant]
     Indication: PAIN
     Dosage: UNK

REACTIONS (3)
  - Pain [Unknown]
  - Oedema mouth [Unknown]
  - Stomatitis [Unknown]
